FAERS Safety Report 8607221-2 (Version None)
Quarter: 2012Q3

REPORT INFORMATION
  Report Type: 
  Country: None (occurrence: None)
  Receive Date: 20120821
  Receipt Date: 20120813
  Transmission Date: 20120928
  Serious: No
  Sender: FDA-Public Use
  Company Number: US-BIOGENIDEC-2012BI029343

PATIENT
  Sex: Female

DRUGS (3)
  1. TYLENOL PM [Concomitant]
     Indication: PREMEDICATION
  2. AVONEX [Suspect]
     Indication: MULTIPLE SCLEROSIS
     Route: 030
     Dates: start: 20010901, end: 20030101
  3. AVONEX [Suspect]
     Route: 030
     Dates: start: 20120808

REACTIONS (2)
  - NIGHT SWEATS [None]
  - INFLUENZA LIKE ILLNESS [None]
